FAERS Safety Report 5852102-0 (Version None)
Quarter: 2008Q3

REPORT INFORMATION
  Report Type: 
  Country: None (occurrence: None)
  Receive Date: 20080819
  Receipt Date: 20080819
  Transmission Date: 20090109
  Serious: Yes (Hospitalization)
  Sender: FDA-Public Use
  Company Number: None

PATIENT
  Age: 63 Year
  Sex: Male
  Weight: 67 kg

DRUGS (8)
  1. CLOPIDOGREL [Suspect]
     Indication: CORONARY ARTERY DISEASE
     Dosage: 75 MG DAILY PO CHRONIC
     Route: 048
  2. PREDNISONE TAB [Concomitant]
  3. METHOTREXATE [Concomitant]
  4. LEXAPRO [Concomitant]
  5. TOPROL-XL [Concomitant]
  6. VYTORIN [Concomitant]
  7. FOSAMAX [Concomitant]
  8. REQUIP [Concomitant]

REACTIONS (4)
  - ACUTE MYOCARDIAL INFARCTION [None]
  - DIVERTICULUM INTESTINAL HAEMORRHAGIC [None]
  - HAEMORRHAGIC ANAEMIA [None]
  - LOWER GASTROINTESTINAL HAEMORRHAGE [None]
